FAERS Safety Report 5524982-X (Version None)
Quarter: 2007Q4

REPORT INFORMATION
  Report Type: 
  Country: None (occurrence: None)
  Receive Date: 20071119
  Receipt Date: 20071113
  Transmission Date: 20080405
  Serious: Yes (Hospitalization)
  Sender: FDA-Public Use
  Company Number: 2007BI019464

PATIENT
  Age: 46 Year
  Sex: Female

DRUGS (1)
  1. AVONEX [Suspect]
     Indication: MULTIPLE SCLEROSIS
     Dosage: 30 UG;QW;IM
     Route: 030
     Dates: start: 20070418, end: 20070801

REACTIONS (5)
  - BREAST CANCER [None]
  - DRUG INEFFECTIVE [None]
  - DRUG THERAPY CHANGED [None]
  - MULTIPLE SCLEROSIS [None]
  - VISUAL DISTURBANCE [None]
